FAERS Safety Report 6936403-0 (Version None)
Quarter: 2010Q3

REPORT INFORMATION
  Report Type: 
  Country: None (occurrence: None)
  Receive Date: 20100823
  Receipt Date: 20100813
  Transmission Date: 20110219
  Serious: Yes (Other)
  Sender: FDA-Public Use
  Company Number: US-ASTRAZENECA-2010SE38146

PATIENT

DRUGS (2)
  1. NEXIUM [Suspect]
     Route: 048
  2. LIPITOR [Suspect]
     Route: 048

REACTIONS (2)
  - DYSPNOEA [None]
  - DYSTONIA [None]
